FAERS Safety Report 5059982-X (Version None)
Quarter: 2006Q3

REPORT INFORMATION
  Report Type: 
  Country: None (occurrence: None)
  Receive Date: 20060719
  Receipt Date: 20060704
  Transmission Date: 20061208
  Serious: Yes (Other)
  Sender: FDA-Public Use
  Company Number: UKP06000170

PATIENT
  Age: 74 Year
  Sex: Male

DRUGS (1)
  1. ASACOL [Suspect]
     Indication: CROHN'S DISEASE
     Dosage: 800 MG, 2/DAY, ORAL
     Route: 048
     Dates: end: 20060501

REACTIONS (2)
  - COUGH [None]
  - CRYPTOGENIC ORGANISING PNEUMONIA [None]
